FAERS Safety Report 24742894 (Version 1)
Quarter: 2024Q4

REPORT INFORMATION
  Report Type: Spontaneous
  Country: GB (occurrence: GB)
  Receive Date: 20241217
  Receipt Date: 20241217
  Transmission Date: 20250115
  Serious: Yes (Other)
  Sender: MYLAN
  Company Number: GB-MHRA-TPP13471796C14514709YC1733927934129

PATIENT
  Age: 33 Year
  Sex: Female
  Weight: 107 kg

DRUGS (4)
  1. DOXYCYCLINE [Suspect]
     Active Substance: DOXYCYCLINE
     Indication: Ill-defined disorder
     Dosage: 2 DOSAGE FORM (TWO NOW THEN ONE DAILY)
     Route: 065
     Dates: start: 20241210
  2. DOXYCYCLINE [Suspect]
     Active Substance: DOXYCYCLINE
     Dosage: 1 DOSAGE FORM, QD (ONE DAILY)
     Route: 065
  3. CLARITHROMYCIN [Concomitant]
     Active Substance: CLARITHROMYCIN
     Indication: Ill-defined disorder
     Dosage: 1 DOSAGE FORM, BID (ONE TO BE TAKEN TWICE A DAY)
     Route: 065
     Dates: start: 20241112, end: 20241113
  4. CLINDAMYCIN [Concomitant]
     Active Substance: CLINDAMYCIN
     Indication: Ill-defined disorder
     Dosage: QD (DAILY, APPLY AT NIGHT)
     Route: 065
     Dates: start: 20230116, end: 20241112

REACTIONS (1)
  - Lip swelling [Recovered/Resolved]
